FAERS Safety Report 9274552 (Version 1)
Quarter: 2013Q2

REPORT INFORMATION
  Report Type: Spontaneous
  Country: ES (occurrence: ES)
  Receive Date: 20130507
  Receipt Date: 20130507
  Transmission Date: 20140414
  Serious: Yes (Hospitalization, Other)
  Sender: FDA-Public Use
  Company Number: ES-ROCHE-1221381

PATIENT
  Age: 73 Year
  Sex: Male

DRUGS (8)
  1. LUCENTIS [Suspect]
     Indication: PRODUCT USED FOR UNKNOWN INDICATION
     Route: 050
     Dates: start: 201108
  2. LUCENTIS [Suspect]
     Route: 050
     Dates: start: 201302, end: 201302
  3. FOSTER [Concomitant]
  4. ALLOPURINOL [Concomitant]
  5. ACETYLSALICYLIC ACID [Concomitant]
  6. ZOCOR FORTE [Concomitant]
  7. SEGURIL [Concomitant]
  8. SPIRIVA [Concomitant]

REACTIONS (5)
  - Dysarthria [Recovered/Resolved]
  - Pancreatitis [Recovered/Resolved]
  - Cerebrovascular insufficiency [Recovered/Resolved]
  - Aneurysm [Unknown]
  - Carotid artery stenosis [Unknown]
